FAERS Safety Report 8591406-8 (Version None)
Quarter: 2012Q3

REPORT INFORMATION
  Report Type: 
  Country: None (occurrence: None)
  Receive Date: 20120801
  Receipt Date: 20120711
  Transmission Date: 20120928
  Serious: Yes (Death)
  Sender: FDA-Public Use
  Company Number: 2012-370

PATIENT
  Age: 63 Year
  Sex: Male

DRUGS (4)
  1. FUROSEMIDE [Concomitant]
  2. ABILIFY [Concomitant]
  3. FAZACLO ODT [Suspect]
     Dosage: 200 MG, QD, ORAL
     Route: 048
     Dates: start: 20110214, end: 20120601
  4. LISINOPRIL [Concomitant]

REACTIONS (3)
  - TYPE 1 DIABETES MELLITUS [None]
  - CHRONIC OBSTRUCTIVE PULMONARY DISEASE [None]
  - CARDIAC FAILURE CONGESTIVE [None]
